FAERS Safety Report 17371547 (Version 10)
Quarter: 2022Q4

REPORT INFORMATION
  Report Type: Spontaneous
  Country: US (occurrence: US)
  Receive Date: 20200205
  Receipt Date: 20221229
  Transmission Date: 20230112
  Serious: Yes (Disabling, Other)
  Sender: FDA-Public Use
  Company Number: US-PFIZER INC-2020042059

PATIENT
  Age: 70 Year
  Sex: Female
  Weight: 66.68 kg

DRUGS (3)
  1. PREMARIN [Suspect]
     Active Substance: ESTROGENS, CONJUGATED
     Indication: Vulvovaginal dryness
     Dosage: 2 G, 3 TIMES A WEEK
     Route: 067
  2. PREMARIN [Suspect]
     Active Substance: ESTROGENS, CONJUGATED
     Indication: Stress urinary incontinence
     Dosage: 1.5 G, 3X/WEEKLY(EVERY TUESDAY/THURSDAY/SATURDAY)
     Route: 067
  3. PREMARIN [Suspect]
     Active Substance: ESTROGENS, CONJUGATED
     Dosage: 1.5 G, 2X/WEEK
     Route: 067

REACTIONS (9)
  - Neuropathy peripheral [Unknown]
  - Fibromyalgia [Unknown]
  - Gait disturbance [Unknown]
  - Fall [Unknown]
  - Mental disorder [Unknown]
  - Hypertension [Unknown]
  - Frustration tolerance decreased [Unknown]
  - COVID-19 [Unknown]
  - Off label use [Unknown]
